FAERS Safety Report 23904711 (Version 7)
Quarter: 2025Q4

REPORT INFORMATION
  Report Type: Spontaneous
  Country: CA (occurrence: CA)
  Receive Date: 20240527
  Receipt Date: 20251021
  Transmission Date: 20260118
  Serious: Yes (Other)
  Sender: CELLTRION
  Company Number: CA-PFIZER INC-202400130380

PATIENT

DRUGS (17)
  1. INFLIXIMAB [Suspect]
     Active Substance: INFLIXIMAB
     Indication: Colitis ulcerative
     Dosage: 5 MG/KG
     Route: 042
  2. INFLIXIMAB [Suspect]
     Active Substance: INFLIXIMAB
     Dosage: 495 MILLIGRAM
     Route: 042
  3. INFLIXIMAB [Suspect]
     Active Substance: INFLIXIMAB
     Dosage: 7500 MICROGRAM/KILOGRAM
     Route: 042
  4. INFLIXIMAB [Suspect]
     Active Substance: INFLIXIMAB
     Dosage: 7500 MICROGRAM/KILOGRAM
     Route: 042
  5. INFLIXIMAB [Suspect]
     Active Substance: INFLIXIMAB
     Dosage: 772.5 MILLIGRAM
     Route: 042
  6. INFLIXIMAB [Suspect]
     Active Substance: INFLIXIMAB
     Dosage: 780 MILLIGRAM
     Route: 042
  7. INFLIXIMAB [Suspect]
     Active Substance: INFLIXIMAB
     Dosage: 5 MG/KG
     Route: 042
  8. INFLIXIMAB [Suspect]
     Active Substance: INFLIXIMAB
     Dosage: 742.5 MILLIGRAM
     Route: 042
  9. INFLECTRA [Suspect]
     Active Substance: INFLIXIMAB-DYYB
     Indication: Colitis ulcerative
     Dosage: 5 MG/KG, INDUCTION AT WEEKS 0, 2 AND 6, THEN EVERY 8 WEEKS
     Route: 042
     Dates: start: 20240403
  10. INFLECTRA [Suspect]
     Active Substance: INFLIXIMAB-DYYB
     Dosage: 5 MG/KG, INDUCTION AT WEEKS 0, 2 AND 6, THEN EVERY 8 WEEKS
     Route: 042
     Dates: start: 20240418
  11. INFLECTRA [Suspect]
     Active Substance: INFLIXIMAB-DYYB
     Dosage: 495 MG (5 MG/KG), AFTER 4 WEEKS (WEEK 6) (INDUCTION AT WEEKS 0, 2 AND 6, THEN EVERY 8 WEEKS)
     Route: 042
     Dates: start: 20240516
  12. INFLECTRA [Suspect]
     Active Substance: INFLIXIMAB-DYYB
     Dosage: 7500 UG/KG, EVERY 4 WEEKS
     Route: 042
     Dates: start: 20240617
  13. INFLECTRA [Suspect]
     Active Substance: INFLIXIMAB-DYYB
     Dosage: 742.5MG (7.5MG/KG), EVERY 4 WEEKS
     Route: 042
     Dates: start: 20240718
  14. INFLECTRA [Suspect]
     Active Substance: INFLIXIMAB-DYYB
     Dosage: 7500 UG/KG, EVERY 4 WEEKS
     Route: 042
     Dates: start: 20250225
  15. INFLECTRA [Suspect]
     Active Substance: INFLIXIMAB-DYYB
     Dosage: 772.5 MG, EVERY 4 WEEKS (7500 UG/KG, EVERY 4 WEEKS)
     Route: 042
     Dates: start: 20250326
  16. INFLECTRA [Suspect]
     Active Substance: INFLIXIMAB-DYYB
     Dosage: 780 MG, AFTER 3 WEEKS AND 6 DAYS (7500 UG/KG EVER 4 WEEKS)
     Route: 042
     Dates: start: 20250422
  17. MESALAMINE [Concomitant]
     Active Substance: MESALAMINE
     Dosage: UNK

REACTIONS (5)
  - Condition aggravated [Not Recovered/Not Resolved]
  - Drug ineffective [Not Recovered/Not Resolved]
  - Off label use [Not Recovered/Not Resolved]
  - Overdose [Unknown]
  - Intentional product use issue [Unknown]

NARRATIVE: CASE EVENT DATE: 20240401
